FAERS Safety Report 7630087-4 (Version None)
Quarter: 2011Q3

REPORT INFORMATION
  Report Type: 
  Country: None (occurrence: None)
  Receive Date: 20110715
  Receipt Date: 20110704
  Transmission Date: 20111222
  Serious: Yes (Death, Other)
  Sender: FDA-Public Use
  Company Number: GB-AGG-07-2011-0080

PATIENT
  Sex: Male

DRUGS (8)
  1. TIROFIBAN [Suspect]
     Indication: MYOCARDIAL INFARCTION
     Dosage: 0.768 LIT (32 ML/HR FOR 1 DAY; 0.192 LIT (8 MFHR FOR 30 MIN),INTRAVENOUS(NOT OTHERWISE SPECIFIED)
     Route: 042
     Dates: start: 20110106, end: 20110106
  2. FONDAPARINUX SODIUM [Concomitant]
  3. OMEPRAZOLE [Concomitant]
  4. PENICILLIN [Concomitant]
  5. DOBUTAMINE HCL [Concomitant]
  6. ASPIRIN [Concomitant]
  7. CLOPIDOGREL [Concomitant]
  8. CLARITHROMYCIN [Concomitant]

REACTIONS (6)
  - HAEMOGLOBIN DECREASED [None]
  - FALSE POSITIVE INVESTIGATION RESULT [None]
  - HAEMOPTYSIS [None]
  - THROMBOCYTOPENIA [None]
  - CARDIOGENIC SHOCK [None]
  - DISEASE COMPLICATION [None]
